FAERS Safety Report 9213888 (Version 1)
Quarter: 2013Q2

REPORT INFORMATION
  Report Type: Spontaneous
  Country: US (occurrence: None)
  Receive Date: 20130404
  Receipt Date: 20130404
  Transmission Date: 20140414
  Serious: Yes (Other)
  Sender: FDA-Public Use
  Company Number: None

PATIENT
  Age: 72 Year
  Sex: Male
  Weight: 92.53 kg

DRUGS (1)
  1. METOPROLOL SUCCINATE ER [Suspect]
     Dates: start: 20121216, end: 20130218

REACTIONS (1)
  - Atrial fibrillation [None]
